FAERS Safety Report 6562948-1 (Version None)
Quarter: 2010Q1

REPORT INFORMATION
  Report Type: 
  Country: None (occurrence: None)
  Receive Date: 20100130
  Receipt Date: 20100127
  Transmission Date: 20100710
  Serious: Yes (Death, Hospitalization)
  Sender: FDA-Public Use
  Company Number: US-ALLERGAN-0916651US

PATIENT
  Age: 96 Year
  Sex: Male

DRUGS (7)
  1. ACUVAIL [Suspect]
     Indication: POSTOPERATIVE CARE
     Dosage: 1 GTT, BID
  2. ACUVAIL [Suspect]
  3. ACUVAIL [Suspect]
  4. AGGRENOX [Suspect]
     Indication: TRANSIENT ISCHAEMIC ATTACK
     Dosage: 25/200 MG, BID
  5. MULTI-VITAMIN [Concomitant]
     Dosage: UNK
  6. IRON SUPPLEMENT [Concomitant]
  7. CITRACAL [Concomitant]
     Indication: SUPPLEMENTATION THERAPY

REACTIONS (4)
  - CEREBROVASCULAR ACCIDENT [None]
  - DEATH [None]
  - EPISTAXIS [None]
  - OVERDOSE [None]
